FAERS Safety Report 6765857-8 (Version None)
Quarter: 2010Q2

REPORT INFORMATION
  Report Type: 
  Country: None (occurrence: None)
  Receive Date: 20100611
  Receipt Date: 20100607
  Transmission Date: 20101027
  Serious: Yes (Life-Threatening, Other)
  Sender: FDA-Public Use
  Company Number: CA-ASTRAZENECA-2010SE26568

PATIENT
  Age: 66 Year
  Sex: Female

DRUGS (7)
  1. CRESTOR [Suspect]
     Route: 048
  2. LIPIDIL [Interacting]
     Route: 048
  3. ATENOLOL [Concomitant]
     Indication: BLOOD PRESSURE
     Route: 048
  4. HYDROCHLOROTHIAZIDE [Concomitant]
  5. RASILEZ [Concomitant]
  6. SYNTHROID [Concomitant]
  7. ZOPICLONE [Concomitant]

REACTIONS (5)
  - ARTHRALGIA [None]
  - DRUG INTERACTION [None]
  - DYSKINESIA [None]
  - MYALGIA [None]
  - SLEEP DISORDER [None]
